FAERS Safety Report 13891955 (Version 1)
Quarter: 2017Q3

REPORT INFORMATION
  Report Type: Spontaneous
  Country: US (occurrence: US)
  Receive Date: 20170822
  Receipt Date: 20170822
  Transmission Date: 20171127
  Serious: No
  Sender: FDA-Public Use
  Company Number: US-009507513-1708USA007222

PATIENT
  Sex: Female

DRUGS (1)
  1. NEXPLANON [Suspect]
     Active Substance: ETONOGESTREL
     Dosage: 68 MG EVERY 3 YEARS
     Route: 059
     Dates: start: 201705, end: 201708

REACTIONS (4)
  - Limb injury [Unknown]
  - Device breakage [Unknown]
  - Vaginal haemorrhage [Unknown]
  - No adverse event [Unknown]

NARRATIVE: CASE EVENT DATE: 2017
